FAERS Safety Report 19436329 (Version 1)
Quarter: 2021Q2

REPORT INFORMATION
  Report Type: Spontaneous
  Country: BR (occurrence: BR)
  Receive Date: 20210618
  Receipt Date: 20210618
  Transmission Date: 20210717
  Serious: Yes (Other)
  Sender: FDA-Public Use
  Company Number: BR-TORRENT-00005621

PATIENT
  Age: 87 Year
  Sex: Female
  Weight: 60 kg

DRUGS (3)
  1. LAMITOR CD [Suspect]
     Active Substance: LAMOTRIGINE
     Indication: DIZZINESS
     Dosage: STARTED 5 YEARS AGO, 1 TABLET AT NIGHT
     Route: 048
     Dates: start: 2016
  2. SELOZOK [Concomitant]
     Active Substance: METOPROLOL SUCCINATE
     Indication: CARDIAC DISORDER
     Dosage: UNKNOWN
     Route: 048
  3. ARADOIS [Concomitant]
     Active Substance: LOSARTAN POTASSIUM
     Indication: HYPERTENSION
     Dosage: UNKNOWN
     Route: 048

REACTIONS (6)
  - Off label use [Unknown]
  - Cerebrovascular accident [Recovered/Resolved]
  - Withdrawal syndrome [Unknown]
  - Fall [Unknown]
  - Intentional self-injury [Unknown]
  - Pruritus [Not Recovered/Not Resolved]

NARRATIVE: CASE EVENT DATE: 2016
